FAERS Safety Report 8420876-0 (Version None)
Quarter: 2012Q2

REPORT INFORMATION
  Report Type: 
  Country: None (occurrence: None)
  Receive Date: 20120608
  Receipt Date: 20120607
  Transmission Date: 20120825
  Serious: Yes (Death, Hospitalization, Other)
  Sender: FDA-Public Use
  Company Number: US-PFIZER INC-2012081761

PATIENT
  Sex: Male

DRUGS (2)
  1. VIAGRA [Suspect]
     Indication: ERECTILE DYSFUNCTION
     Dosage: 50 MG, UNK
     Route: 048
  2. VIAGRA [Suspect]
     Dosage: 20 MG, AS NEEDED (PRN)
     Route: 048
     Dates: end: 20120419

REACTIONS (8)
  - CARDIAC FAILURE [None]
  - INFECTION [None]
  - HAEMORRHAGE INTRACRANIAL [None]
  - CARDIOMYOPATHY [None]
  - DEEP VEIN THROMBOSIS [None]
  - DEVICE RELATED INFECTION [None]
  - INSOMNIA [None]
  - THROMBOCYTOPENIA [None]
